FAERS Safety Report 14620975 (Version 1)
Quarter: 2018Q1

REPORT INFORMATION
  Report Type: Spontaneous
  Country: AU (occurrence: AU)
  Receive Date: 20180309
  Receipt Date: 20180309
  Transmission Date: 20180509
  Serious: No
  Sender: FDA-Public Use
  Company Number: AU-009507513-1803AUS002941

PATIENT
  Sex: Male

DRUGS (1)
  1. DIPROSONE [Suspect]
     Active Substance: BETAMETHASONE DIPROPIONATE
     Indication: SINUSITIS
     Dosage: 1 MILLIMOLAR (MM) IN SALINE AT NIGHT
     Dates: start: 201703

REACTIONS (4)
  - Product use in unapproved indication [Unknown]
  - Incorrect route of drug administration [Unknown]
  - Wrong technique in product usage process [Unknown]
  - Drug prescribing error [Unknown]
